FAERS Safety Report 6564104-X (Version None)
Quarter: 2010Q1

REPORT INFORMATION
  Report Type: 
  Country: None (occurrence: None)
  Receive Date: 20100131
  Receipt Date: 20100119
  Transmission Date: 20100710
  Serious: No
  Sender: FDA-Public Use
  Company Number: US-ALLERGAN-1000695US

PATIENT
  Age: 74 Year
  Sex: Male

DRUGS (1)
  1. BOTOX COSMETIC [Suspect]
     Indication: BLEPHAROSPASM
     Dosage: UNK

REACTIONS (2)
  - DYSARTHRIA [None]
  - FACIAL PARESIS [None]
